FAERS Safety Report 17759907 (Version 1)
Quarter: 2020Q2

REPORT INFORMATION
  Report Type: Spontaneous
  Country: IT (occurrence: IT)
  Receive Date: 20200508
  Receipt Date: 20200508
  Transmission Date: 20200714
  Serious: Yes (Life-Threatening, Hospitalization, Other)
  Sender: FDA-Public Use
  Company Number: IT-HIKMA PHARMACEUTICALS USA INC.-IT-H14001-20-51295

PATIENT
  Age: 62 Year
  Sex: Male

DRUGS (4)
  1. CYCLOPHOSPHAMIDE. [Suspect]
     Active Substance: CYCLOPHOSPHAMIDE
     Indication: THYMOMA MALIGNANT
     Route: 065
     Dates: start: 201706, end: 2017
  2. CISPLATIN. [Suspect]
     Active Substance: CISPLATIN
     Indication: THYMOMA MALIGNANT
     Route: 065
     Dates: start: 201706, end: 2017
  3. DOXORUBICIN [Suspect]
     Active Substance: DOXORUBICIN
     Indication: THYMOMA MALIGNANT
     Route: 065
     Dates: start: 201706, end: 2017
  4. PREDNISONE. [Suspect]
     Active Substance: PREDNISONE
     Indication: THYMOMA MALIGNANT
     Route: 065
     Dates: start: 201706, end: 2017

REACTIONS (2)
  - Normocytic anaemia [Not Recovered/Not Resolved]
  - Aplasia pure red cell [Unknown]

NARRATIVE: CASE EVENT DATE: 201706
